FAERS Safety Report 7086952-2 (Version None)
Quarter: 2010Q4

REPORT INFORMATION
  Report Type: 
  Country: None (occurrence: None)
  Receive Date: 20101106
  Receipt Date: 20100920
  Transmission Date: 20110411
  Serious: No
  Sender: FDA-Public Use
  Company Number: US-WYE-H17671610

PATIENT
  Sex: Female
  Weight: 63.56 kg

DRUGS (5)
  1. PREMARIN [Suspect]
     Indication: MENOPAUSE
     Route: 048
     Dates: start: 19830101, end: 20080401
  2. PREMARIN [Suspect]
     Route: 048
     Dates: start: 20100501
  3. ERGOCALCIFEROL [Concomitant]
  4. ONE-A-DAY [Concomitant]
  5. CALCIUM PHOSPHATE/CALCIUM SODIUM LACTATE/ERGOCALCIFEROL [Concomitant]

REACTIONS (1)
  - ALOPECIA [None]
